FAERS Safety Report 9246165 (Version 2)
Quarter: 2013Q2

REPORT INFORMATION
  Report Type: Report from Study
  Country: PR (occurrence: PR)
  Receive Date: 20130422
  Receipt Date: 20130506
  Transmission Date: 20140414
  Serious: Yes (Death, Hospitalization)
  Sender: FDA-Public Use
  Company Number: PR-ABBOTT-13P-131-1079537-00

PATIENT
  Age: 53 Year
  Sex: Male
  Weight: 71.28 kg

DRUGS (2)
  1. HUMIRA [Suspect]
     Indication: CROHN^S DISEASE
     Route: 058
     Dates: start: 2011, end: 20120504
  2. HUMIRA [Suspect]
     Route: 058
     Dates: start: 20120601, end: 20130318

REACTIONS (2)
  - Metastatic neoplasm [Fatal]
  - Anaemia [Not Recovered/Not Resolved]
